FAERS Safety Report 9814296 (Version 1)
Quarter: 2014Q1

REPORT INFORMATION
  Report Type: Spontaneous
  Country: FR (occurrence: FR)
  Receive Date: 20140113
  Receipt Date: 20140113
  Transmission Date: 20141002
  Serious: Yes (Hospitalization)
  Sender: FDA-Public Use
  Company Number: FR-UCBSA-107855

PATIENT
  Age: 61 Year
  Sex: Male

DRUGS (12)
  1. XYZALL [Suspect]
     Dosage: DOSE :5 MG/DAY , FREQUENCY UNSPECIFIED
     Dates: end: 20131120
  2. CRESTOR [Suspect]
     Dosage: DOSE:10 MG/DAY ,FREQUENCY UNSPECIFIED
     Dates: end: 20131120
  3. DEXERYL [Suspect]
     Dosage: DOSE: 1 DF/DAY, FREQUECNY UNSPECIFIED
     Route: 061
     Dates: end: 20131120
  4. MIANSERINE ARROW [Suspect]
     Dosage: DOSE : 30 MG/DAY, FREQUENCY UNSPECIFIED, SCORED FILM COATED TABLET
     Dates: start: 201307, end: 20131122
  5. LAMOTRIGINE ARROW [Suspect]
     Dosage: DOSE :250 MG/DAY DOSAGE STRENGTH :25 MG AND 100 MG 2 PER DAY
     Route: 048
     Dates: start: 201307, end: 20131120
  6. ALPRAZOLAM [Concomitant]
  7. DUPHALAC [Concomitant]
     Dosage: STRENGTH :10 G , DOSE AND FREQUENCY UNSPECIFIED
  8. NEBIVOLOL [Concomitant]
     Dosage: DOSE :5 MG/DAY, FREQUENCY UNSPECIFIED
  9. PAROXETINE [Concomitant]
  10. PRAXILENE [Concomitant]
  11. PLAVIX [Concomitant]
     Dosage: DOSE: 75 MG/DAY FREQUENCY UNSPECIFIED
  12. SULFAREM S [Concomitant]

REACTIONS (1)
  - Eczema [Recovering/Resolving]
